FAERS Safety Report 5103963-4 (Version None)
Quarter: 2006Q3

REPORT INFORMATION
  Report Type: 
  Country: None (occurrence: None)
  Receive Date: 20060908
  Receipt Date: 20060825
  Transmission Date: 20061208
  Serious: Yes (Other)
  Sender: FDA-Public Use
  Company Number: 2006-06-1243

PATIENT
  Age: 44 Year
  Sex: Female
  Weight: 72.5755 kg

DRUGS (2)
  1. PEG-INTRON [Suspect]
     Indication: HEPATITIS C
     Dosage: 120 MCG;/WK; SC
     Route: 058
     Dates: start: 20060526
  2. REBETOL [Suspect]
     Indication: HEPATITIS C
     Dosage: 1000 MG, QD; PO
     Route: 048
     Dates: start: 20060526

REACTIONS (9)
  - CONTRAST MEDIA REACTION [None]
  - DECREASED APPETITE [None]
  - DEHYDRATION [None]
  - FATIGUE [None]
  - INTRACRANIAL ANEURYSM [None]
  - MIDDLE INSOMNIA [None]
  - NAUSEA [None]
  - ORAL INTAKE REDUCED [None]
  - WEIGHT DECREASED [None]
